FAERS Safety Report 17210518 (Version 1)
Quarter: 2019Q4

REPORT INFORMATION
  Report Type: Spontaneous
  Country: US (occurrence: US)
  Receive Date: 20191227
  Receipt Date: 20191227
  Transmission Date: 20200122
  Serious: Yes (Hospitalization)
  Sender: FDA-Public Use
  Company Number: US-BAYER-2019-081226

PATIENT
  Age: 80 Year
  Sex: Male

DRUGS (4)
  1. XARELTO [Suspect]
     Active Substance: RIVAROXABAN
     Indication: ARTERIAL OCCLUSIVE DISEASE
  2. BAYER LOW DOSE [Suspect]
     Active Substance: ASPIRIN
     Indication: ARTERIAL OCCLUSIVE DISEASE
  3. XARELTO [Suspect]
     Active Substance: RIVAROXABAN
     Indication: EMBOLISM VENOUS
     Dosage: UNK UNK, QD
     Route: 048
     Dates: start: 20160415, end: 20160422
  4. BAYER LOW DOSE [Suspect]
     Active Substance: ASPIRIN
     Indication: EMBOLISM VENOUS
     Dosage: 81 MG, QD
     Route: 048

REACTIONS (3)
  - Gastrointestinal haemorrhage [Recovered/Resolved]
  - Off label use [Unknown]
  - Product use in unapproved indication [Unknown]

NARRATIVE: CASE EVENT DATE: 20160415
